FAERS Safety Report 15929445 (Version 3)
Quarter: 2019Q1

REPORT INFORMATION
  Report Type: Spontaneous
  Country: JP (occurrence: JP)
  Receive Date: 20190206
  Receipt Date: 20190326
  Transmission Date: 20190417
  Serious: Yes (Other)
  Sender: FDA-Public Use
  Company Number: JP-CELGENEUS-JPN-20190201564

PATIENT
  Age: 70 Year
  Sex: Male

DRUGS (2)
  1. POMALYST [Suspect]
     Active Substance: POMALIDOMIDE
     Indication: PLASMA CELL MYELOMA
     Dosage: 3 MILLIGRAM
     Route: 048
     Dates: start: 20190116, end: 20190129
  2. VELCADE [Suspect]
     Active Substance: BORTEZOMIB
     Indication: PLASMA CELL MYELOMA
     Dosage: 1.3 MILLIGRAM/SQ. METER
     Route: 058
     Dates: start: 20190116, end: 20190123

REACTIONS (3)
  - Cholecystitis infective [Recovered/Resolved]
  - Escherichia sepsis [Recovering/Resolving]
  - Leukopenia [Recovered/Resolved]

NARRATIVE: CASE EVENT DATE: 20190129
